FAERS Safety Report 7607591-8 (Version None)
Quarter: 2011Q3

REPORT INFORMATION
  Report Type: 
  Country: None (occurrence: None)
  Receive Date: 20110713
  Receipt Date: 20110706
  Transmission Date: 20111222
  Serious: Yes (Life-Threatening, Other)
  Sender: FDA-Public Use
  Company Number: PHHY2010US84013

PATIENT
  Sex: Female
  Weight: 67.574 kg

DRUGS (1)
  1. FEMARA [Suspect]
     Indication: BREAST CANCER
     Route: 048

REACTIONS (3)
  - FEELING ABNORMAL [None]
  - COUGH [None]
  - MYCOBACTERIUM AVIUM COMPLEX INFECTION [None]
